FAERS Safety Report 6404622-8 (Version None)
Quarter: 2009Q4

REPORT INFORMATION
  Report Type: 
  Country: None (occurrence: None)
  Receive Date: 20091016
  Receipt Date: 20091013
  Transmission Date: 20100525
  Serious: Yes (Hospitalization)
  Sender: FDA-Public Use
  Company Number: DE-ROCHE-645885

PATIENT
  Sex: Female

DRUGS (3)
  1. VALIUM [Suspect]
     Indication: DRUG USE FOR UNKNOWN INDICATION
     Route: 065
  2. BETASERON [Suspect]
     Indication: RELAPSING-REMITTING MULTIPLE SCLEROSIS
     Dosage: DOSING AMOUNT: 8 MIU. DURATION : 1 YEAR 33 WEEKS 2 DAYS. EXPIRATION DATE: MAY 2010
     Route: 058
     Dates: start: 20070908, end: 20090427
  3. BETASERON [Suspect]
     Dosage: DOSING AMOUNT: 8 MIU
     Route: 058
     Dates: start: 20090608

REACTIONS (9)
  - ASTHENIA [None]
  - CARDIAC ARREST [None]
  - FATIGUE [None]
  - HYPOPHAGIA [None]
  - INJECTION SITE MASS [None]
  - JOINT CONTRACTURE [None]
  - JOINT SWELLING [None]
  - PNEUMONIA [None]
  - WEIGHT DECREASED [None]
